FAERS Safety Report 18253279 (Version 1)
Quarter: 2020Q3

REPORT INFORMATION
  Report Type: Spontaneous
  Country: US (occurrence: US)
  Receive Date: 20200910
  Receipt Date: 20200910
  Transmission Date: 20201103
  Serious: Yes (Other)
  Sender: FDA-Public Use
  Company Number: US-ACCORD-200346

PATIENT
  Age: 8 Decade
  Sex: Female

DRUGS (1)
  1. MYCOPHENOLIC ACID. [Suspect]
     Active Substance: MYCOPHENOLIC ACID
     Indication: SCLERODERMA

REACTIONS (4)
  - Vascular occlusion [Recovering/Resolving]
  - Metastases to nervous system [Recovering/Resolving]
  - Squamous cell carcinoma of skin [Recovered/Resolved with Sequelae]
  - Tumour thrombosis [Recovering/Resolving]
